FAERS Safety Report 8544849-2 (Version None)
Quarter: 2012Q3

REPORT INFORMATION
  Report Type: 
  Country: None (occurrence: None)
  Receive Date: 20120727
  Receipt Date: 20120720
  Transmission Date: 20120928
  Serious: Yes (Disabling)
  Sender: FDA-Public Use
  Company Number: FR-ROCHE-1090513

PATIENT
  Sex: Male

DRUGS (5)
  1. COPEGUS [Suspect]
     Route: 048
     Dates: start: 20120101, end: 20120314
  2. PEGASYS [Suspect]
     Route: 058
     Dates: start: 20120101, end: 20120314
  3. PEGASYS [Suspect]
     Indication: PRODUCT USED FOR UNKNOWN INDICATION
  4. COPEGUS [Suspect]
     Indication: PRODUCT USED FOR UNKNOWN INDICATION
  5. VICTRELIS [Suspect]
     Indication: PRODUCT USED FOR UNKNOWN INDICATION
     Route: 048
     Dates: start: 20120129, end: 20120314

REACTIONS (1)
  - POLYNEUROPATHY [None]
